FAERS Safety Report 4659927-8 (Version None)
Quarter: 2005Q2

REPORT INFORMATION
  Report Type: 
  Country: None (occurrence: None)
  Receive Date: 20050510
  Receipt Date: 20050401
  Transmission Date: 20051028
  Serious: Yes (Hospitalization)
  Sender: FDA-Public Use
  Company Number: 2005BI002071

PATIENT
  Age: 56 Year
  Sex: Female
  Weight: 77.1115 kg

DRUGS (1)
  1. AVONEX [Suspect]
     Indication: MULTIPLE SCLEROSIS
     Dosage: 30 UG; QW; IM
     Route: 030
     Dates: start: 20030101, end: 20041228

REACTIONS (8)
  - DECUBITUS ULCER [None]
  - FALL [None]
  - GRIP STRENGTH DECREASED [None]
  - HAEMATOCRIT DECREASED [None]
  - HYPERTENSION [None]
  - NECK PAIN [None]
  - RENAL ABSCESS [None]
  - SEPSIS [None]
